FAERS Safety Report 8305578-3 (Version None)
Quarter: 2012Q2

REPORT INFORMATION
  Report Type: 
  Country: None (occurrence: None)
  Receive Date: 20120423
  Receipt Date: 20120413
  Transmission Date: 20120825
  Serious: Yes (Other)
  Sender: FDA-Public Use
  Company Number: US-ELI_LILLY_AND_COMPANY-US201104002457

PATIENT
  Sex: Female

DRUGS (3)
  1. FORTEO [Suspect]
     Dosage: 20 UG, QD
     Route: 065
  2. FORTEO [Suspect]
     Dosage: 20 UG, QD
     Route: 065
  3. FORTEO [Suspect]
     Indication: OSTEOPOROSIS
     Dosage: 20 UG, QD
     Route: 065

REACTIONS (10)
  - CONDITION AGGRAVATED [None]
  - BONE DENSITY DECREASED [None]
  - PAIN IN EXTREMITY [None]
  - RENAL DISORDER [None]
  - INJURY [None]
  - PAIN [None]
  - FALL [None]
  - NEOPLASM MALIGNANT [None]
  - DRY MOUTH [None]
  - DYSPHAGIA [None]
